FAERS Safety Report 17094669 (Version 2)
Quarter: 2020Q1

REPORT INFORMATION
  Report Type: Spontaneous
  Country: GB (occurrence: GB)
  Receive Date: 20191130
  Receipt Date: 20200306
  Transmission Date: 20200409
  Serious: Yes (Death)
  Sender: FDA-Public Use
  Company Number: GB-ROCHE-2478305

PATIENT
  Age: 61 Year
  Sex: Female
  Weight: 115 kg

DRUGS (17)
  1. HYDROXYCHLOROQUINE SULFATE. [Concomitant]
     Active Substance: HYDROXYCHLOROQUINE SULFATE
     Route: 065
     Dates: start: 20190815
  2. AMOXICILLIN. [Concomitant]
     Active Substance: AMOXICILLIN
     Route: 065
     Dates: start: 20190711
  3. LEVOTHYROXINE. [Concomitant]
     Active Substance: LEVOTHYROXINE
     Route: 048
  4. FOSTAIR [Concomitant]
     Active Substance: BECLOMETHASONE\FORMOTEROL
     Dosage: 100MCG + 6MCG
     Route: 048
  5. SALBUTAMOL [Concomitant]
     Active Substance: ALBUTEROL
     Dosage: 1-2 PUFFS, UP TO 4 TIMES A DAY
     Route: 065
     Dates: start: 20151023
  6. IBUPROFEN. [Concomitant]
     Active Substance: IBUPROFEN
     Dosage: APPLY
     Route: 065
     Dates: start: 20190423
  7. BUMETANIDE. [Concomitant]
     Active Substance: BUMETANIDE
     Route: 065
     Dates: start: 20151123
  8. CLARITHROMYCIN. [Concomitant]
     Active Substance: CLARITHROMYCIN
     Dosage: FOR 5 DAYS
     Route: 065
     Dates: start: 20190716
  9. SIMVASTATIN. [Concomitant]
     Active Substance: SIMVASTATIN
     Route: 048
  10. TOCILIZUMAB. [Suspect]
     Active Substance: TOCILIZUMAB
     Indication: RHEUMATOID ARTHRITIS
     Route: 042
     Dates: start: 20180629, end: 20190906
  11. LOSARTAN POTASSIUM. [Concomitant]
     Active Substance: LOSARTAN POTASSIUM
     Route: 065
     Dates: start: 20190311
  12. OMEPRAZOLE. [Concomitant]
     Active Substance: OMEPRAZOLE
     Dosage: 1 OR 2 PER DAY
     Route: 065
     Dates: start: 20190730
  13. PARACETAMOL [Concomitant]
     Active Substance: ACETAMINOPHEN
     Dosage: MAXIMUM OF 8 IN 24 HOURS
     Route: 065
     Dates: start: 20130814
  14. ACETYLSALICYLIC ACID [Concomitant]
     Active Substance: ASPIRIN
     Route: 065
     Dates: start: 20181031
  15. BRALTUS [Concomitant]
     Active Substance: TIOTROPIUM BROMIDE
     Route: 048
  16. SULFASALAZINE. [Concomitant]
     Active Substance: SULFASALAZINE
     Route: 048
  17. GLYCERYL TRINITRATE [Concomitant]
     Active Substance: NITROGLYCERIN
     Indication: CHEST PAIN
     Dosage: 1 OR 2 DOSES
     Route: 060
     Dates: start: 20181031

REACTIONS (1)
  - Sudden death [Fatal]
